FAERS Safety Report 18029240 (Version 5)
Quarter: 2024Q1

REPORT INFORMATION
  Report Type: Spontaneous
  Country: US (occurrence: US)
  Receive Date: 20200715
  Receipt Date: 20240206
  Transmission Date: 20240410
  Serious: No
  Sender: FDA-Public Use
  Company Number: US-AMGEN-USASP2020110999

PATIENT
  Sex: Female

DRUGS (3)
  1. REPATHA [Suspect]
     Active Substance: EVOLOCUMAB
     Indication: Blood cholesterol abnormal
     Dosage: UNK, Q2WK
     Route: 065
  2. REPATHA [Suspect]
     Active Substance: EVOLOCUMAB
     Dosage: 420 MILLIGRAM
     Route: 065
     Dates: start: 2019
  3. REPATHA [Suspect]
     Active Substance: EVOLOCUMAB
     Dosage: 420 MILLIGRAM
     Route: 065
     Dates: start: 2019

REACTIONS (3)
  - Device use error [Unknown]
  - Product preparation error [Unknown]
  - Drug dose omission by device [Unknown]

NARRATIVE: CASE EVENT DATE: 20240121
